FAERS Safety Report 23065031 (Version 2)
Quarter: 2023Q4

REPORT INFORMATION
  Report Type: Spontaneous
  Country: PH (occurrence: US)
  Receive Date: 20231013
  Receipt Date: 20231025
  Transmission Date: 20240110
  Serious: Yes (Hospitalization, Disabling, Other)
  Sender: FDA-Public Use
  Company Number: PH-PFIZER INC-PV202300164813

PATIENT
  Sex: Female

DRUGS (1)
  1. PRISTIQ EXTENDED-RELEASE [Suspect]
     Active Substance: DESVENLAFAXINE SUCCINATE
     Indication: Anxiety
     Dosage: 25 MG
     Dates: start: 20230825

REACTIONS (9)
  - Seizure [Unknown]
  - Headache [Recovered/Resolved]
  - Loss of personal independence in daily activities [Unknown]
  - Memory impairment [Unknown]
  - Dyskinesia [Unknown]
  - Fall [Unknown]
  - Staring [Unknown]
  - Communication disorder [Unknown]
  - Off label use [Unknown]
